FAERS Safety Report 25818579 (Version 1)
Quarter: 2025Q3

REPORT INFORMATION
  Report Type: Spontaneous
  Country: US (occurrence: US)
  Receive Date: 20250918
  Receipt Date: 20250918
  Transmission Date: 20251021
  Serious: Yes (Other)
  Sender: JUBILANT
  Company Number: US-JUBILANT CADISTA PHARMACEUTICALS-2025JUB00103

PATIENT
  Age: 52 Year
  Sex: Female

DRUGS (2)
  1. LAMOTRIGINE [Suspect]
     Active Substance: LAMOTRIGINE
     Indication: Epilepsy
     Dosage: 300 MG, 2X/DAY
     Route: 065
  2. BRIVARACETAM [Concomitant]
     Active Substance: BRIVARACETAM

REACTIONS (2)
  - Encephalopathy [Unknown]
  - Toxicity to various agents [Unknown]
